FAERS Safety Report 5601381-3 (Version None)
Quarter: 2008Q1

REPORT INFORMATION
  Report Type: 
  Country: None (occurrence: None)
  Receive Date: 20080118
  Receipt Date: 20080110
  Transmission Date: 20080703
  Serious: Yes (Other)
  Sender: FDA-Public Use
  Company Number: 2008-00056

PATIENT
  Age: 60 Year
  Sex: Male
  Weight: 87.1 kg

DRUGS (1)
  1. VELCADE [Suspect]
     Indication: LUNG ADENOCARCINOMA
     Dosage: 1.60 MG/M2, IV BOLUS
     Route: 040
     Dates: start: 20070803

REACTIONS (1)
  - DIABETES MELLITUS [None]
